FAERS Safety Report 5181007-6 (Version None)
Quarter: 2006Q4

REPORT INFORMATION
  Report Type: 
  Country: None (occurrence: None)
  Receive Date: 20061212
  Receipt Date: 20061129
  Transmission Date: 20070319
  Serious: Yes (Hospitalization, Other)
  Sender: FDA-Public Use
  Company Number: HQWYE868110OCT06

PATIENT
  Age: 67 Year
  Sex: Female

DRUGS (8)
  1. PROPRANOLOL HYDROCHLORIDE [Suspect]
     Dosage: 20 MG 1X PER 1 DAY ORAL
     Route: 048
  2. ALDACTONE [Suspect]
  3. COTAREG (HYDROCHLOROTHIAZIDE/VALSARTAN,) [Suspect]
     Dosage: 1 DOSAGE FORM 1X PER 1 DAY ORAL
     Route: 048
  4. DIGOXIN [Suspect]
  5. EUPRESSYL (URAPIDIL,) [Suspect]
     Dosage: 120 MG 1X PER 1 DAY ORAL
     Route: 048
  6. FUROSEMIDE [Suspect]
     Dosage: 20 MG 1X PER 1 DAY ORAL
     Route: 048
  7. PROZAC [Suspect]
     Dosage: 1 DOSAGE FORM 1X PER 1 DAY ORAL
     Route: 048
  8. SINTROM [Suspect]
     Dosage: 0.75 DOSAGE FORM 1X PER 1 DAY ORAL
     Route: 048

REACTIONS (2)
  - CONDITION AGGRAVATED [None]
  - DERMATITIS BULLOUS [None]
